FAERS Safety Report 13093999 (Version 1)
Quarter: 2017Q1

REPORT INFORMATION
  Report Type: Spontaneous
  Country: US (occurrence: US)
  Receive Date: 20170106
  Receipt Date: 20170106
  Transmission Date: 20170428
  Serious: Yes (Other)
  Sender: FDA-Public Use
  Company Number: US-BAYER-2016-224620

PATIENT
  Sex: Female
  Weight: 79.37 kg

DRUGS (2)
  1. ARTHROTEC [DICLOFENAC SODIUM] [Concomitant]
     Indication: ARTHRITIS
     Dosage: 50.02 MG, QD
     Route: 048
     Dates: start: 201602
  2. BAYER GENUINE ASPIRIN [Suspect]
     Active Substance: ASPIRIN
     Dosage: UNK

REACTIONS (2)
  - Gastrointestinal ulcer [Unknown]
  - Drug ineffective [Unknown]
